FAERS Safety Report 5285304-5 (Version None)
Quarter: 2007Q2

REPORT INFORMATION
  Report Type: 
  Country: None (occurrence: None)
  Receive Date: 20070403
  Receipt Date: 20070327
  Transmission Date: 20071010
  Serious: Yes (Hospitalization)
  Sender: FDA-Public Use
  Company Number: US-ROXANE LABORATORIES, INC-2007-BP-04490RO

PATIENT
  Age: 15 Year
  Sex: Female

DRUGS (6)
  1. PREDNISONE TABLETS, 50MG [Suspect]
     Indication: JUVENILE ARTHRITIS
     Dosage: 50 MG, QOD
     Route: 048
     Dates: start: 20060630
  2. METHOTREXATE [Suspect]
     Indication: JUVENILE ARTHRITIS
     Dosage: 25 MG/WEEK
     Route: 048
     Dates: start: 20060208
  3. NAPROSYN [Suspect]
     Indication: JUVENILE ARTHRITIS
     Dosage: 500 MG BID
     Route: 048
     Dates: start: 20060131, end: 20060825
  4. UNSPECIFIED CLINICAL TRIAL DRUG [Suspect]
     Indication: JUVENILE ARTHRITIS
     Dates: start: 20060504
  5. FOLIC ACID [Concomitant]
     Indication: PROPHYLAXIS
     Dates: start: 20060301
  6. PREVACID [Concomitant]
     Indication: PROPHYLAXIS AGAINST GASTROINTESTINAL ULCER
     Dates: start: 20060217, end: 20060825

REACTIONS (1)
  - ANAEMIA [None]
